FAERS Safety Report 18193895 (Version 1)
Quarter: 2020Q3

REPORT INFORMATION
  Report Type: Spontaneous
  Country: FR (occurrence: FR)
  Receive Date: 20200825
  Receipt Date: 20200825
  Transmission Date: 20201103
  Serious: Yes (Hospitalization)
  Sender: FDA-Public Use
  Company Number: FR-PFIZER INC-2020325282

PATIENT
  Age: 58 Year
  Sex: Female
  Weight: 73 kg

DRUGS (3)
  1. ZITHROMAX [Suspect]
     Active Substance: AZITHROMYCIN DIHYDRATE
     Indication: CORONAVIRUS INFECTION
     Dosage: 500 MG THEN 250 MG
     Route: 048
     Dates: start: 20200729
  2. PLAQUENIL [Interacting]
     Active Substance: HYDROXYCHLOROQUINE SULFATE
     Indication: CORONAVIRUS INFECTION
     Dosage: 600 MG, 1X/DAY
     Route: 048
     Dates: start: 20200731, end: 20200731
  3. ZITHROMAX [Interacting]
     Active Substance: AZITHROMYCIN DIHYDRATE
     Dosage: 500 MG THEN 250 MG
     Route: 048
     Dates: end: 20200731

REACTIONS (5)
  - Drug interaction [Recovered/Resolved]
  - Electrocardiogram QT prolonged [Recovered/Resolved]
  - Off label use [Unknown]
  - Supraventricular tachycardia [Recovered/Resolved]
  - Product use in unapproved indication [Unknown]

NARRATIVE: CASE EVENT DATE: 20200729
